FAERS Safety Report 24267913 (Version 2)
Quarter: 2024Q3

REPORT INFORMATION
  Report Type: Spontaneous
  Country: US (occurrence: US)
  Receive Date: 20240830
  Receipt Date: 20240903
  Transmission Date: 20241017
  Serious: Yes (Other)
  Sender: PFIZER
  Company Number: US-PFIZER INC-202400245829

PATIENT
  Age: 12 Year
  Sex: Female
  Weight: 25.714 kg

DRUGS (1)
  1. GENOTROPIN [Suspect]
     Active Substance: SOMATROPIN
     Indication: Growth hormone deficiency
     Dosage: 1 MG, NIGHTLY AT BEDTIME
     Route: 058

REACTIONS (2)
  - Major depression [Unknown]
  - Therapeutic response unexpected [Unknown]
